FAERS Safety Report 10387992 (Version 1)
Quarter: 2014Q3

REPORT INFORMATION
  Report Type: Spontaneous
  Country: AR (occurrence: AR)
  Receive Date: 20140815
  Receipt Date: 20140815
  Transmission Date: 20150326
  Serious: Yes (Other)
  Sender: FDA-Public Use
  Company Number: AR-AMGEN-ARGSP2014062245

PATIENT
  Age: 42 Year
  Sex: Female

DRUGS (1)
  1. ENBREL [Suspect]
     Active Substance: ETANERCEPT
     Indication: RHEUMATOID ARTHRITIS
     Dosage: 50 MG, WEEKLY
     Route: 065
     Dates: start: 20110311

REACTIONS (4)
  - Abasia [Not Recovered/Not Resolved]
  - Pain [Recovered/Resolved]
  - Exostosis [Not Recovered/Not Resolved]
  - Tuberculin test positive [Recovered/Resolved]

NARRATIVE: CASE EVENT DATE: 201310
